FAERS Safety Report 15962668 (Version 24)
Quarter: 2022Q2

REPORT INFORMATION
  Report Type: Report from Study
  Country: CA (occurrence: CA)
  Receive Date: 20190214
  Receipt Date: 20220429
  Transmission Date: 20220721
  Serious: Yes (Other)
  Sender: FDA-Public Use
  Company Number: PHHY2018CA136190

PATIENT
  Age: 53 Year
  Sex: Female

DRUGS (17)
  1. SANDOSTATIN LAR DEPOT [Suspect]
     Active Substance: OCTREOTIDE ACETATE
     Indication: Acromegaly
     Dosage: 40 MG, Q4W (EVERY 4 WEEKS)
     Route: 030
     Dates: start: 20050910
  2. SANDOSTATIN LAR DEPOT [Suspect]
     Active Substance: OCTREOTIDE ACETATE
     Dosage: 40 MG, Q4W (EVERY 4 WEEKS)
     Route: 030
     Dates: start: 20190116
  3. SANDOSTATIN LAR DEPOT [Suspect]
     Active Substance: OCTREOTIDE ACETATE
     Dosage: 40 MG, Q4W (EVERY 4 WEEKS)
     Route: 030
  4. SANDOSTATIN LAR DEPOT [Suspect]
     Active Substance: OCTREOTIDE ACETATE
     Dosage: 40 MG, Q4W (EVERY 4 WEEKS)
     Route: 030
     Dates: start: 20190815
  5. SANDOSTATIN LAR DEPOT [Suspect]
     Active Substance: OCTREOTIDE ACETATE
     Dosage: 40 MG, Q4W (EVERY 4 WEEKS)
     Route: 030
     Dates: start: 20191110
  6. AMLODIPINE [Concomitant]
     Active Substance: AMLODIPINE BESYLATE
     Indication: Blood pressure abnormal
     Dosage: UNK
     Route: 065
  7. IRON [Concomitant]
     Active Substance: IRON
     Indication: Product used for unknown indication
     Dosage: UNK
     Route: 065
  8. TYLENOL [Concomitant]
     Active Substance: ACETAMINOPHEN
     Indication: Product used for unknown indication
     Dosage: UNK
     Route: 065
  9. PROZAC [Concomitant]
     Active Substance: FLUOXETINE HYDROCHLORIDE
     Indication: Product used for unknown indication
     Dosage: UNK
     Route: 065
  10. SYNTHROID [Concomitant]
     Active Substance: LEVOTHYROXINE SODIUM
     Indication: Product used for unknown indication
     Dosage: UNK
     Route: 065
  11. ALVESCO [Concomitant]
     Active Substance: CICLESONIDE
     Indication: Product used for unknown indication
     Dosage: UNK
     Route: 065
  12. PANTOPRAZOLE SODIUM [Concomitant]
     Active Substance: PANTOPRAZOLE SODIUM
     Indication: Product used for unknown indication
     Dosage: UNK
     Route: 065
  13. VENTOLIN [Concomitant]
     Active Substance: ALBUTEROL SULFATE
     Indication: Product used for unknown indication
     Dosage: UNK
     Route: 065
  14. CORTEF [Concomitant]
     Active Substance: HYDROCORTISONE
     Indication: Product used for unknown indication
     Dosage: UNK
     Route: 065
  15. METHADONE HYDROCHLORIDE [Concomitant]
     Active Substance: METHADONE HYDROCHLORIDE
     Indication: Product used for unknown indication
     Dosage: UNK
     Route: 065
  16. RAMIPRIL [Concomitant]
     Active Substance: RAMIPRIL
     Indication: Product used for unknown indication
     Dosage: UNK
     Route: 048
  17. NYSTATIN [Concomitant]
     Active Substance: NYSTATIN
     Indication: Product used for unknown indication
     Dosage: UNK
     Route: 048

REACTIONS (40)
  - Aortic valve incompetence [Unknown]
  - Chest pain [Recovering/Resolving]
  - Haematochezia [Unknown]
  - Pain [Unknown]
  - Dyspnoea [Recovered/Resolved]
  - Nephrolithiasis [Unknown]
  - Hepatic haemorrhage [Unknown]
  - Pyrexia [Recovered/Resolved]
  - Fatigue [Unknown]
  - Orthostatic hypotension [Unknown]
  - Blood pressure decreased [Unknown]
  - Nasopharyngitis [Unknown]
  - Night sweats [Unknown]
  - Arthritis [Unknown]
  - Arthralgia [Unknown]
  - Pyrexia [Unknown]
  - Myalgia [Unknown]
  - Decreased appetite [Unknown]
  - Eating disorder [Unknown]
  - Dry skin [Unknown]
  - Skin exfoliation [Unknown]
  - Weight decreased [Unknown]
  - Malaise [Not Recovered/Not Resolved]
  - Renal pain [Recovering/Resolving]
  - Blood pressure increased [Unknown]
  - Pharyngitis streptococcal [Unknown]
  - Oropharyngeal pain [Recovering/Resolving]
  - Cystitis [Unknown]
  - Sensation of foreign body [Unknown]
  - Bone disorder [Unknown]
  - Needle issue [Unknown]
  - Cholelithiasis [Not Recovered/Not Resolved]
  - Abdominal pain [Recovered/Resolved]
  - Headache [Unknown]
  - Abdominal pain [Unknown]
  - Abdominal discomfort [Unknown]
  - Injection site pain [Unknown]
  - Injection site swelling [Not Recovered/Not Resolved]
  - Vomiting [Unknown]
  - Nausea [Unknown]

NARRATIVE: CASE EVENT DATE: 20170401
